FAERS Safety Report 7312039-7 (Version None)
Quarter: 2011Q1

REPORT INFORMATION
  Report Type: 
  Country: None (occurrence: None)
  Receive Date: 20110224
  Receipt Date: 20100216
  Transmission Date: 20110831
  Serious: No
  Sender: FDA-Public Use
  Company Number: US-BRISTOL-MYERS SQUIBB COMPANY-14978613

PATIENT
  Age: 68 Year
  Sex: Female
  Weight: 63 kg

DRUGS (4)
  1. RADIATION THERAPY [Suspect]
     Dosage: 5 DAYS PER WEEK
     Dates: start: 20090701, end: 20090801
  2. LIPITOR [Concomitant]
  3. HERCEPTIN [Concomitant]
  4. TAXOL [Suspect]
     Indication: BREAST CANCER
     Route: 042
     Dates: start: 20090401, end: 20090601

REACTIONS (2)
  - SKIN TIGHTNESS [None]
  - MOBILITY DECREASED [None]
